FAERS Safety Report 8344897-1 (Version None)
Quarter: 2012Q2

REPORT INFORMATION
  Report Type: 
  Country: None (occurrence: None)
  Receive Date: 20120508
  Receipt Date: 19990614
  Transmission Date: 20120825
  Serious: Yes (Other)
  Sender: FDA-Public Use
  Company Number: US-TEVA-US023750

PATIENT
  Age: 19 Year
  Sex: Female

DRUGS (7)
  1. DILANTIN [Concomitant]
     Dosage: 330 MILLIGRAM;
     Route: 048
     Dates: start: 19990101, end: 19990301
  2. DILANTIN [Concomitant]
     Indication: MYOCLONIC EPILEPSY
     Dosage: 275 MILLIGRAM;
     Route: 048
     Dates: start: 19930101, end: 19990101
  3. DILANTIN [Concomitant]
     Dosage: 420 MILLIGRAM;
     Route: 048
     Dates: start: 19990301
  4. MULTI-VITAMINS [Concomitant]
     Route: 065
  5. ATIVAN [Concomitant]
     Route: 065
  6. FOLIC ACID [Concomitant]
     Route: 065
  7. GABITRIL [Suspect]
     Indication: MYOCLONIC EPILEPSY
     Dosage: 36 MILLIGRAM;
     Route: 048

REACTIONS (2)
  - CONVULSION [None]
  - MATERNAL EXPOSURE DURING PREGNANCY [None]
